FAERS Safety Report 18511158 (Version 2)
Quarter: 2020Q4

REPORT INFORMATION
  Report Type: Spontaneous
  Country: TN (occurrence: TN)
  Receive Date: 20201117
  Receipt Date: 20201129
  Transmission Date: 20210114
  Serious: Yes (Other)
  Sender: FDA-Public Use
  Company Number: TN-TEVA-2020-TN-1850408

PATIENT
  Age: 60 Year
  Sex: Female

DRUGS (1)
  1. ACITRETIN UNK [Suspect]
     Active Substance: ACITRETIN
     Indication: PUSTULAR PSORIASIS
     Dosage: 30 MG, QD
     Route: 065

REACTIONS (1)
  - Kaposi^s sarcoma [Recovered/Resolved]
